FAERS Safety Report 5911729-8 (Version None)
Quarter: 2008Q4

REPORT INFORMATION
  Report Type: 
  Country: None (occurrence: None)
  Receive Date: 20081008
  Receipt Date: 20081003
  Transmission Date: 20090506
  Serious: Yes (Other)
  Sender: FDA-Public Use
  Company Number: JP-SP-2008-01125

PATIENT
  Age: 75 Year
  Sex: Female

DRUGS (2)
  1. IMMUCYST [Suspect]
     Indication: BLADDER CANCER
     Route: 043
     Dates: start: 20070911, end: 20071009
  2. IMMUCYST [Suspect]
     Route: 043
     Dates: start: 20070911, end: 20071009

REACTIONS (6)
  - BLOOD IMMUNOGLOBULIN E INCREASED [None]
  - BRONCHOPULMONARY ASPERGILLOSIS ALLERGIC [None]
  - COUGH [None]
  - EOSINOPHIL COUNT INCREASED [None]
  - INCORRECT DOSE ADMINISTERED [None]
  - PRODUCTIVE COUGH [None]
